FAERS Safety Report 13563197 (Version 1)
Quarter: 2017Q2

REPORT INFORMATION
  Report Type: Other
  Country: FR (occurrence: FR)
  Receive Date: 20170519
  Receipt Date: 20170519
  Transmission Date: 20170830
  Serious: Yes (Hospitalization, Other)
  Sender: FDA-Public Use
  Company Number: FR-ASTELLAS-2017US018985

PATIENT
  Age: 26 Year
  Sex: Male

DRUGS (4)
  1. PROGRAF [Suspect]
     Active Substance: TACROLIMUS\TACROLIMUS ANHYDROUS
     Dosage: 3 MG IN THE MORNING AND 2.5 MG AT NIGHT, TWICE DAILY
     Route: 048
     Dates: start: 20151014, end: 20160203
  2. MYFORTIC [Suspect]
     Active Substance: MYCOPHENOLATE SODIUM
     Indication: IMMUNOSUPPRESSION
     Route: 065
  3. PROGRAF [Suspect]
     Active Substance: TACROLIMUS\TACROLIMUS ANHYDROUS
     Indication: PROPHYLAXIS AGAINST TRANSPLANT REJECTION
     Route: 048
     Dates: start: 20130820
  4. PROGRAF [Suspect]
     Active Substance: TACROLIMUS\TACROLIMUS ANHYDROUS
     Dosage: MG IN THE MORNING AND 5 MG AT NIGHT, TWICE DAILY
     Route: 048
     Dates: start: 20161025

REACTIONS (10)
  - Complications of transplanted kidney [Unknown]
  - Abdominal pain [Unknown]
  - Escherichia pyelonephritis [Unknown]
  - Inflammatory marker increased [Unknown]
  - Immunosuppressant drug level increased [Unknown]
  - Overdose [Unknown]
  - Acute kidney injury [Recovering/Resolving]
  - Subileus [Unknown]
  - Acute kidney injury [Unknown]
  - Hyperthermia [Unknown]

NARRATIVE: CASE EVENT DATE: 201508
